FAERS Safety Report 21061432 (Version 2)
Quarter: 2022Q3

REPORT INFORMATION
  Report Type: Report from Study
  Country: EG (occurrence: EG)
  Receive Date: 20220709
  Receipt Date: 20220727
  Transmission Date: 20221027
  Serious: Yes (Other)
  Sender: FDA-Public Use
  Company Number: EG-NOVARTISPH-NVSC2022EG154832

PATIENT
  Age: 76 Year
  Sex: Female

DRUGS (7)
  1. ENTRESTO [Suspect]
     Active Substance: SACUBITRIL\VALSARTAN
     Indication: Cardiac failure
     Dosage: 0.5 DOSAGE FORM (50 MG)
     Route: 048
     Dates: start: 202203
  2. ENTRESTO [Suspect]
     Active Substance: SACUBITRIL\VALSARTAN
     Dosage: 1 DOSAGE FORM, BID (50 MG)
     Route: 065
     Dates: start: 20220322
  3. ENTRESTO [Suspect]
     Active Substance: SACUBITRIL\VALSARTAN
     Dosage: 0.5 MG, BID 50 MG (HALF TABLET IN THE MORNING, ONE TAB IN NIGHT)
     Route: 048
     Dates: start: 20220612
  4. BISOPROLOL FUMARATE [Concomitant]
     Active Substance: BISOPROLOL FUMARATE
     Indication: Product used for unknown indication
     Dosage: 2.5 MG
     Route: 065
  5. ALLOPURINOL [Concomitant]
     Active Substance: ALLOPURINOL
     Indication: Product used for unknown indication
     Dosage: 300 MG
     Route: 065
  6. CRESTOR [Concomitant]
     Active Substance: ROSUVASTATIN CALCIUM
     Indication: Product used for unknown indication
     Dosage: 10 MG
     Route: 065
  7. GAPTIN [Concomitant]
     Indication: Product used for unknown indication
     Route: 065

REACTIONS (6)
  - Multiple sclerosis [Unknown]
  - Dyspnoea [Not Recovered/Not Resolved]
  - Blood pressure systolic increased [Unknown]
  - Prescribed underdose [Unknown]
  - Hypotension [Unknown]
  - Wrong technique in product usage process [Not Recovered/Not Resolved]

NARRATIVE: CASE EVENT DATE: 20220301
